FAERS Safety Report 7530106-X (Version None)
Quarter: 2011Q2

REPORT INFORMATION
  Report Type: 
  Country: None (occurrence: None)
  Receive Date: 20110606
  Receipt Date: 20110606
  Transmission Date: 20111010
  Serious: Yes (Other)
  Sender: FDA-Public Use
  Company Number: None

PATIENT
  Sex: Female
  Weight: 98 kg

DRUGS (1)
  1. SUCCINYLCHOLINE CHLORIDE INJ [Suspect]
     Indication: ENDOTRACHEAL INTUBATION
     Dosage: 120MG X1 IV
     Route: 042
     Dates: start: 20110601

REACTIONS (1)
  - THERAPEUTIC RESPONSE DECREASED [None]
